FAERS Safety Report 12620348 (Version 1)
Quarter: 2016Q3

REPORT INFORMATION
  Report Type: Spontaneous
  Country: US (occurrence: US)
  Receive Date: 20160803
  Receipt Date: 20160803
  Transmission Date: 20161109
  Serious: Yes (Other)
  Sender: FDA-Public Use
  Company Number: US-TEVA-680383USA

PATIENT
  Sex: Female

DRUGS (10)
  1. BREO ELLIPTA [Suspect]
     Active Substance: FLUTICASONE FUROATE\VILANTEROL TRIFENATATE
     Indication: CHRONIC OBSTRUCTIVE PULMONARY DISEASE
     Dosage: 1 PUFF(S), 1 DAY, INHALED
     Route: 055
     Dates: start: 2014
  2. IPRATROPIUM BROMIDE W/SALBUTAMOL [Suspect]
     Active Substance: ALBUTEROL\IPRATROPIUM BROMIDE
     Indication: CHRONIC OBSTRUCTIVE PULMONARY DISEASE
     Route: 055
     Dates: start: 2007
  3. VITAMIN D [Concomitant]
     Active Substance: CHOLECALCIFEROL
  4. ANORO ELLIPTA [Suspect]
     Active Substance: UMECLIDINIUM BROMIDE\VILANTEROL TRIFENATATE
     Indication: CHRONIC OBSTRUCTIVE PULMONARY DISEASE
     Dosage: 1 DAY,  INHALED
     Route: 055
     Dates: start: 201602
  5. IPRATROPIUM [Concomitant]
     Active Substance: IPRATROPIUM
  6. PRAVASTATIN. [Concomitant]
     Active Substance: PRAVASTATIN
  7. PROAIR HFA [Suspect]
     Active Substance: ALBUTEROL SULFATE
     Route: 055
  8. ADVAIR HFA [Suspect]
     Active Substance: FLUTICASONE PROPIONATE\SALMETEROL XINAFOATE
     Indication: CHRONIC OBSTRUCTIVE PULMONARY DISEASE
     Dosage: 250/50 MCG; 1 PUFF TWICE PER DAY
     Route: 055
     Dates: end: 2014
  9. CALCIUM [Concomitant]
     Active Substance: CALCIUM
  10. MULTIVITAMINS [Concomitant]
     Active Substance: VITAMINS

REACTIONS (14)
  - Weight increased [Unknown]
  - Eye haemorrhage [Unknown]
  - Cough [Recovered/Resolved]
  - Malaise [Recovered/Resolved]
  - Fungal infection [Unknown]
  - Unevaluable event [Unknown]
  - Chest discomfort [Recovered/Resolved]
  - Therapeutic response unexpected [Unknown]
  - Pneumothorax [Recovered/Resolved]
  - Middle insomnia [Unknown]
  - Sleep apnoea syndrome [Unknown]
  - Dyspnoea [Recovered/Resolved]
  - Drug ineffective [Unknown]
  - Drug dose omission [Unknown]

NARRATIVE: CASE EVENT DATE: 2014
